FAERS Safety Report 4704957-0 (Version None)
Quarter: 2005Q3

REPORT INFORMATION
  Report Type: 
  Country: None (occurrence: None)
  Receive Date: 20050701
  Receipt Date: 20050620
  Transmission Date: 20060218
  Serious: Yes (Hospitalization)
  Sender: FDA-Public Use
  Company Number: GB-BRISTOL-MYERS SQUIBB COMPANY-13015920

PATIENT
  Age: 73 Year
  Sex: Male

DRUGS (3)
  1. CETUXIMAB [Suspect]
     Indication: COLORECTAL CANCER
     Dosage: MOST RECENT INFUSION 16-MAY-2005
     Route: 041
     Dates: start: 20050321, end: 20050516
  2. OXALIPLATIN [Suspect]
     Indication: COLORECTAL CANCER
     Dosage: MOST RECENT INFUSION16-MAY-2005
     Route: 042
     Dates: start: 20050321, end: 20050516
  3. FLUOROURACIL [Suspect]
     Indication: COLORECTAL CANCER
     Dosage: MOST RECENT INFUSION 16-MAY-2005.
     Route: 042
     Dates: start: 20050321, end: 20050516

REACTIONS (1)
  - HAEMATEMESIS [None]
